FAERS Safety Report 24908453 (Version 8)
Quarter: 2025Q2

REPORT INFORMATION
  Report Type: Report from Study
  Country: CA (occurrence: CA)
  Receive Date: 20250131
  Receipt Date: 20250527
  Transmission Date: 20250716
  Serious: Yes (Other)
  Sender: TAKEDA
  Company Number: CA-TAKEDA-2025TUS010367

PATIENT
  Age: 32 Year
  Sex: Female
  Weight: 69.8 kg

DRUGS (6)
  1. VEDOLIZUMAB [Suspect]
     Active Substance: VEDOLIZUMAB
     Indication: Colitis ulcerative
  2. VEDOLIZUMAB [Suspect]
     Active Substance: VEDOLIZUMAB
     Dosage: 300 MILLIGRAM, Q4WEEKS
     Dates: start: 20250422
  3. PREDNISONE [Concomitant]
     Active Substance: PREDNISONE
  4. MESALAMINE [Concomitant]
     Active Substance: MESALAMINE
  5. MESALAMINE [Concomitant]
     Active Substance: MESALAMINE
  6. VANCOMYCIN [Concomitant]
     Active Substance: VANCOMYCIN
     Indication: Clostridium difficile infection

REACTIONS (3)
  - Colitis ulcerative [Unknown]
  - Clostridium difficile infection [Recovered/Resolved]
  - Off label use [Unknown]

NARRATIVE: CASE EVENT DATE: 20250210
